FAERS Safety Report 6048076-2 (Version None)
Quarter: 2009Q1

REPORT INFORMATION
  Report Type: 
  Country: None (occurrence: None)
  Receive Date: 20090121
  Receipt Date: 20090121
  Transmission Date: 20090719
  Serious: Yes (Death, Hospitalization)
  Sender: FDA-Public Use
  Company Number: None

PATIENT
  Age: 62 Year
  Sex: Male
  Weight: 81.9 kg

DRUGS (3)
  1. MEMANTINE HCL [Suspect]
     Indication: DEMENTIA
     Dosage: 5-10MG PO QDAY PRIOR TO ADMISSION / HOME MED
     Route: 048
  2. MEMANTINE HCL [Suspect]
     Indication: DEMENTIA ALZHEIMER'S TYPE
     Dosage: 5-10MG PO QDAY PRIOR TO ADMISSION / HOME MED
     Route: 048
  3. OLANZAPINE [Suspect]
     Indication: DEMENTIA
     Dosage: 10 MG PO Q BEDTIME PRIOR TO ADMISSION / HOME MED
     Route: 048

REACTIONS (2)
  - CEREBRAL HAEMATOMA [None]
  - HAEMORRHAGE INTRACRANIAL [None]
